FAERS Safety Report 25503059 (Version 1)
Quarter: 2025Q3

REPORT INFORMATION
  Report Type: Spontaneous
  Country: US (occurrence: US)
  Receive Date: 20250702
  Receipt Date: 20250702
  Transmission Date: 20251020
  Serious: Yes (Hospitalization, Other)
  Sender: SANDOZ
  Company Number: US-SANDOZ-SDZ2025US045050

PATIENT
  Age: 81 Year
  Sex: Male

DRUGS (2)
  1. PIOGLITAZONE HYDROCHLORIDE [Suspect]
     Active Substance: PIOGLITAZONE HYDROCHLORIDE
     Indication: Type 2 diabetes mellitus
     Dosage: 45 MG, QD
     Route: 065
  2. FUROSEMIDE [Concomitant]
     Active Substance: FUROSEMIDE
     Indication: Type 2 diabetes mellitus
     Dosage: 40 MG, QD
     Route: 042

REACTIONS (2)
  - Pleural effusion [Recovered/Resolved]
  - Generalised oedema [Recovered/Resolved]
